FAERS Safety Report 22115853 (Version 1)
Quarter: 2023Q1

REPORT INFORMATION
  Report Type: Spontaneous
  Country: US (occurrence: US)
  Receive Date: 20230320
  Receipt Date: 20230320
  Transmission Date: 20230418
  Serious: Yes (Death, Life-Threatening, Other)
  Sender: FDA-Public Use
  Company Number: US-drreddys-SPO/USA/23/0162473

PATIENT
  Age: 12 Year
  Sex: Male

DRUGS (9)
  1. CELECOXIB [Suspect]
     Active Substance: CELECOXIB
     Indication: Metastases to bone
  2. CELECOXIB [Suspect]
     Active Substance: CELECOXIB
     Indication: Neuroblastoma recurrent
  3. CELECOXIB [Suspect]
     Active Substance: CELECOXIB
     Indication: Retroperitoneal cancer
  4. CYCLOPHOSPHAMIDE [Concomitant]
     Active Substance: CYCLOPHOSPHAMIDE
     Indication: Retroperitoneal cancer
     Route: 048
  5. CYCLOPHOSPHAMIDE [Concomitant]
     Active Substance: CYCLOPHOSPHAMIDE
     Indication: Metastases to bone
  6. CYCLOPHOSPHAMIDE [Concomitant]
     Active Substance: CYCLOPHOSPHAMIDE
     Indication: Neuroblastoma recurrent
  7. ETOPOSIDE [Concomitant]
     Active Substance: ETOPOSIDE
     Indication: Neuroblastoma recurrent
     Route: 048
  8. ETOPOSIDE [Concomitant]
     Active Substance: ETOPOSIDE
     Indication: Metastases to bone
  9. ETOPOSIDE [Concomitant]
     Active Substance: ETOPOSIDE
     Indication: Retroperitoneal cancer

REACTIONS (2)
  - Gastritis haemorrhagic [Fatal]
  - Product use in unapproved indication [Unknown]
